FAERS Safety Report 8125410-0 (Version None)
Quarter: 2012Q1

REPORT INFORMATION
  Report Type: 
  Country: None (occurrence: None)
  Receive Date: 20120209
  Receipt Date: 20120202
  Transmission Date: 20120608
  Serious: Yes (Hospitalization, Disabling)
  Sender: FDA-Public Use
  Company Number: US-MERCK-1003USA01388

PATIENT
  Age: 75 Year
  Sex: Female
  Weight: 68 kg

DRUGS (9)
  1. VITAMIN E [Concomitant]
     Route: 065
     Dates: start: 19700101
  2. ZANTAC [Concomitant]
     Route: 065
  3. ASCORBIC ACID [Concomitant]
     Route: 065
     Dates: start: 19700101
  4. VITAMINS (UNSPECIFIED) [Concomitant]
     Route: 048
     Dates: start: 19700101
  5. BACLOFEN [Concomitant]
     Route: 065
     Dates: start: 19760101
  6. BACTRIM [Concomitant]
     Route: 065
  7. FOSAMAX [Suspect]
     Indication: OSTEOPOROSIS
     Route: 048
     Dates: start: 20060101, end: 20090908
  8. ACTONEL [Concomitant]
     Indication: OSTEOPOROSIS
     Route: 065
     Dates: start: 19700101
  9. FOSAMAX [Suspect]
     Route: 048
     Dates: start: 20070101

REACTIONS (29)
  - FEMUR FRACTURE [None]
  - ABDOMINAL PAIN [None]
  - CYSTITIS [None]
  - MUSCULOSKELETAL CHEST PAIN [None]
  - LOBAR PNEUMONIA [None]
  - ANAEMIA POSTOPERATIVE [None]
  - CELLULITIS [None]
  - BURNS SECOND DEGREE [None]
  - SPINAL FRACTURE [None]
  - LOW TURNOVER OSTEOPATHY [None]
  - OEDEMA PERIPHERAL [None]
  - DRUG ADMINISTRATION ERROR [None]
  - ATRIAL FIBRILLATION [None]
  - BRONCHITIS [None]
  - GASTRITIS [None]
  - FRACTURE NONUNION [None]
  - TENDONITIS [None]
  - STRESS FRACTURE [None]
  - IMPAIRED HEALING [None]
  - ACETABULUM FRACTURE [None]
  - URINARY TRACT INFECTION [None]
  - OSTEOARTHRITIS [None]
  - BUNION [None]
  - FALL [None]
  - SPINAL COMPRESSION FRACTURE [None]
  - OSTEOPOROSIS [None]
  - NEUROGENIC BOWEL [None]
  - CHRONIC OBSTRUCTIVE PULMONARY DISEASE [None]
  - ENTEROCOCCAL INFECTION [None]
